FAERS Safety Report 20065383 (Version 3)
Quarter: 2022Q1

REPORT INFORMATION
  Report Type: Spontaneous
  Country: CA (occurrence: CA)
  Receive Date: 20211113
  Receipt Date: 20220212
  Transmission Date: 20220423
  Serious: Yes (Hospitalization, Other)
  Sender: FDA-Public Use
  Company Number: CA-CELLTRION INC.-2021CA015213

PATIENT

DRUGS (3)
  1. INFLECTRA [Suspect]
     Active Substance: INFLIXIMAB-DYYB
     Indication: Colitis
     Dosage: 100 MG
     Dates: start: 20210108, end: 20210108
  2. INFLECTRA [Suspect]
     Active Substance: INFLIXIMAB-DYYB
     Dosage: UNK
     Dates: start: 20210122, end: 20210122
  3. MESALAMINE [Concomitant]
     Active Substance: MESALAMINE
     Dosage: UNK
     Route: 048

REACTIONS (19)
  - Hypothermia [Recovered/Resolved]
  - Hypothermia [Recovered/Resolved]
  - Rash [Recovering/Resolving]
  - Infusion related reaction [Not Recovered/Not Resolved]
  - Haemoglobin decreased [Not Recovered/Not Resolved]
  - Sepsis [Unknown]
  - Thrombosis [Unknown]
  - Ulcer haemorrhage [Unknown]
  - Adrenal insufficiency [Unknown]
  - Feeling cold [Not Recovered/Not Resolved]
  - Hypotension [Unknown]
  - Confusional state [Unknown]
  - Movement disorder [Unknown]
  - Balance disorder [Unknown]
  - Alopecia [Unknown]
  - Condition aggravated [Not Recovered/Not Resolved]
  - Pruritus [Not Recovered/Not Resolved]
  - Dry skin [Not Recovered/Not Resolved]
  - Insomnia [Not Recovered/Not Resolved]

NARRATIVE: CASE EVENT DATE: 20210201
